FAERS Safety Report 17088996 (Version 1)
Quarter: 2019Q4

REPORT INFORMATION
  Report Type: Spontaneous
  Country: ES (occurrence: ES)
  Receive Date: 20191128
  Receipt Date: 20191128
  Transmission Date: 20200122
  Serious: Yes (Hospitalization)
  Sender: FDA-Public Use
  Company Number: ES-009507513-1911ESP008210

PATIENT
  Age: 84 Year
  Sex: Male
  Weight: 72 kg

DRUGS (7)
  1. BISOPROLOL [Concomitant]
     Active Substance: BISOPROLOL
     Dosage: 10 MILLIGRAM, QD (NORMON, FILM-COATED TABLET GENERIC, 30 TABLETS)
     Route: 048
     Dates: start: 201408
  2. SERETIDE [Concomitant]
     Active Substance: FLUTICASONE PROPIONATE\SALMETEROL XINAFOATE
     Dosage: 1 DOSAGE FORM, Q12H (1 INHALER + 60 ALVEOLI)
     Route: 048
     Dates: start: 200601
  3. INVANZ [Suspect]
     Active Substance: ERTAPENEM SODIUM
     Indication: UROSEPSIS
     Dosage: 500 MILLIGRAM, QD (POWDER FOR CONCENTRATE FOR SOLUTION FOR INFUSION, 1 VIAL)
     Route: 042
     Dates: start: 20191018
  4. SIMVASTATIN. [Concomitant]
     Active Substance: SIMVASTATIN
     Dosage: 20 MILLIGRAM, QD (BENEL, FILM-COATED TABLET GENERIC, 28 TABLETS)
     Route: 048
     Dates: start: 200609
  5. XARELTO [Concomitant]
     Active Substance: RIVAROXABAN
     Dosage: 20 MILLIGRAM, QD (100 TABLETS)
     Route: 048
     Dates: start: 200602
  6. LOSARTAN. [Concomitant]
     Active Substance: LOSARTAN
     Dosage: 50 MILLIGRAM, QD (NORMON, FILM-COATED TABLET GENERIC, 500 TABLETS)
     Route: 048
     Dates: start: 200801
  7. DUODART [Concomitant]
     Active Substance: DUTASTERIDE\TAMSULOSIN
     Dosage: 1 DOSAGE FORM, QD (30 CAPSULES)
     Route: 048
     Dates: start: 201908

REACTIONS (1)
  - Encephalopathy [Recovered/Resolved]

NARRATIVE: CASE EVENT DATE: 20191020
